FAERS Safety Report 7591634-4 (Version None)
Quarter: 2011Q3

REPORT INFORMATION
  Report Type: 
  Country: None (occurrence: None)
  Receive Date: 20110706
  Receipt Date: 20110621
  Transmission Date: 20111222
  Serious: Yes (Other)
  Sender: FDA-Public Use
  Company Number: US-BAYER-201028590NA

PATIENT
  Age: 29 Year
  Sex: Female
  Weight: 91 kg

DRUGS (10)
  1. YASMIN [Suspect]
     Indication: PREMENSTRUAL SYNDROME
  2. VITAMIN D [Concomitant]
  3. LEVOTHYROXINE SODIUM [Concomitant]
  4. YAZ [Suspect]
     Indication: ACNE
     Dosage: UNK
     Dates: start: 20020101, end: 20090101
  5. YAZ [Suspect]
     Indication: PREMENSTRUAL SYNDROME
  6. DROSPIRENONE AND ETHINYL ESTRADIOL [Suspect]
     Indication: ACNE
     Dosage: UNK
     Dates: start: 20020101, end: 20090101
  7. YASMIN [Suspect]
     Indication: ACNE
     Dosage: UNK
     Dates: start: 20020101, end: 20090101
  8. YASMIN [Suspect]
     Indication: CONTRACEPTION
  9. DROSPIRENONE AND ETHINYL ESTRADIOL [Suspect]
     Indication: PREMENSTRUAL SYNDROME
  10. PHENTERMINE [Concomitant]
     Indication: THYROID DISORDER
     Dosage: UNK
     Dates: start: 20080101

REACTIONS (4)
  - GALLBLADDER DISORDER [None]
  - PAIN [None]
  - CHOLELITHIASIS [None]
  - CHOLECYSTITIS ACUTE [None]
